FAERS Safety Report 6286252-4 (Version None)
Quarter: 2009Q3

REPORT INFORMATION
  Report Type: 
  Country: None (occurrence: None)
  Receive Date: 20090716
  Receipt Date: 20090414
  Transmission Date: 20100115
  Serious: Yes (Hospitalization)
  Sender: FDA-Public Use
  Company Number: 2008BI022867

PATIENT
  Age: 62 Year
  Sex: Female
  Weight: 66.6788 kg

DRUGS (14)
  1. AVONEX [Suspect]
     Indication: MULTIPLE SCLEROSIS
     Dosage: 30 UG;QW;IM
     Route: 030
     Dates: start: 20010101
  2. CENTRUM SILVER VITAMIN [Concomitant]
  3. STOOL SOFTENER [Concomitant]
  4. MIRAPEX [Concomitant]
  5. ASPIRIN [Concomitant]
  6. ACIPHEX [Concomitant]
  7. LEVOTHYROXINE SODIUM [Concomitant]
  8. TRANDOLAPRIL [Concomitant]
  9. KADIAN [Concomitant]
  10. FLUOXETINE [Concomitant]
  11. MORPHINE [Concomitant]
  12. AMBIEN [Concomitant]
  13. DIAZEPAM [Concomitant]
  14. PREV MEDS [Concomitant]

REACTIONS (4)
  - FATIGUE [None]
  - MEMORY IMPAIRMENT [None]
  - MULTIPLE SCLEROSIS RELAPSE [None]
  - PAIN IN EXTREMITY [None]
